FAERS Safety Report 23060186 (Version 1)
Quarter: 2023Q4

REPORT INFORMATION
  Report Type: Spontaneous
  Country: US (occurrence: None)
  Receive Date: 20231012
  Receipt Date: 20231012
  Transmission Date: 20240109
  Serious: Yes (Hospitalization, Other)
  Sender: FDA-Public Use
  Company Number: None

PATIENT
  Age: 84 Year
  Sex: Female
  Weight: 66.15 kg

DRUGS (2)
  1. VYNDAMAX [Suspect]
     Active Substance: TAFAMIDIS
     Indication: Myopathy toxic
     Dosage: FREQUENCY : DAILY;?
     Route: 048
     Dates: start: 20230508, end: 20230905
  2. ATORVASTATIN [Suspect]
     Active Substance: ATORVASTATIN

REACTIONS (6)
  - Muscular weakness [None]
  - Dysstasia [None]
  - Gait disturbance [None]
  - Blood creatine phosphokinase increased [None]
  - Autoimmune myositis [None]
  - Rhabdomyolysis [None]

NARRATIVE: CASE EVENT DATE: 20230904
